FAERS Safety Report 9722037 (Version 4)
Quarter: 2014Q4

REPORT INFORMATION
  Report Type: Report from Study
  Country: CH (occurrence: CH)
  Receive Date: 20131202
  Receipt Date: 20141117
  Transmission Date: 20150529
  Serious: Yes (Death, Life-Threatening, Hospitalization)
  Sender: FDA-Public Use
  Company Number: CH-ROCHE-1307878

PATIENT
  Age: 70 Year
  Sex: Female
  Weight: 90 kg

DRUGS (1)
  1. BEVACIZUMAB [Suspect]
     Active Substance: BEVACIZUMAB
     Indication: GLIOBLASTOMA
     Dosage: 10 MG/KG DATE OF MOST RECENT DOSE: 5/NOV/2013
     Route: 042
     Dates: start: 20131022, end: 20131110

REACTIONS (6)
  - General physical health deterioration [Not Recovered/Not Resolved]
  - Ataxia [Not Recovered/Not Resolved]
  - Glioblastoma [Fatal]
  - Large intestine perforation [Recovered/Resolved with Sequelae]
  - Gastrointestinal perforation [Recovered/Resolved]
  - Diverticulitis [Recovered/Resolved with Sequelae]

NARRATIVE: CASE EVENT DATE: 20131111
